FAERS Safety Report 12894648 (Version 1)
Quarter: 2016Q4

REPORT INFORMATION
  Report Type: Spontaneous
  Country: FR (occurrence: FR)
  Receive Date: 20161028
  Receipt Date: 20161028
  Transmission Date: 20170207
  Serious: Yes (Death, Life-Threatening, Hospitalization, Other)
  Sender: FDA-Public Use
  Company Number: FR-PFIZER INC-2015440700

PATIENT
  Age: 78 Year
  Sex: Male

DRUGS (12)
  1. MIANSERIN [Concomitant]
     Active Substance: MIANSERIN
     Dosage: UNK
     Route: 065
  2. AMLODIPINE [Concomitant]
     Active Substance: AMLODIPINE BESYLATE
     Dosage: UNK
     Route: 065
  3. IMETH [Suspect]
     Active Substance: METHOTREXATE SODIUM
     Dosage: 2 DF, DAILY
     Route: 048
     Dates: start: 20150626, end: 201509
  4. TEMESTA [Concomitant]
     Active Substance: LORAZEPAM
     Dosage: UNK
     Route: 065
  5. CORTANCYL [Concomitant]
     Active Substance: PREDNISONE
     Dosage: UNK
     Route: 065
  6. IMETH [Suspect]
     Active Substance: METHOTREXATE SODIUM
     Dosage: 20 MG, WEEKLY, (ON MONDAYS)
  7. RISPERDAL [Concomitant]
     Active Substance: RISPERIDONE
     Dosage: UNK
     Route: 065
  8. CYMBALTA [Concomitant]
     Active Substance: DULOXETINE HYDROCHLORIDE
     Dosage: UNK
     Route: 065
  9. LYRICA [Concomitant]
     Active Substance: PREGABALIN
     Dosage: UNK
     Route: 065
  10. STILNOX [Concomitant]
     Active Substance: ZOLPIDEM TARTRATE
     Dosage: UNK
     Route: 065
  11. THERALENE [Concomitant]
     Active Substance: TRIMEPRAZINE
     Dosage: UNK
     Route: 065
  12. COAPROVEL [Concomitant]
     Active Substance: HYDROCHLOROTHIAZIDE\IRBESARTAN
     Dosage: UNK
     Route: 065

REACTIONS (17)
  - Inappropriate schedule of drug administration [Fatal]
  - Pneumonia [Unknown]
  - Vasoplegia syndrome [Unknown]
  - CD4 lymphocytes decreased [Fatal]
  - Pneumocystis jirovecii pneumonia [Fatal]
  - Myopathy [Unknown]
  - Immunoglobulins decreased [Unknown]
  - Polyneuropathy [Unknown]
  - Confusional state [Unknown]
  - Shock [Unknown]
  - Immune reconstitution inflammatory syndrome [Unknown]
  - CD8 lymphocytes decreased [Fatal]
  - Acute kidney injury [Unknown]
  - Pneumonia escherichia [Unknown]
  - Aspiration [Unknown]
  - Accidental overdose [Fatal]
  - Pneumonia pseudomonal [Unknown]

NARRATIVE: CASE EVENT DATE: 20150626
